FAERS Safety Report 24800347 (Version 1)
Quarter: 2025Q1

REPORT INFORMATION
  Report Type: Spontaneous
  Country: US (occurrence: None)
  Receive Date: 20250101
  Receipt Date: 20250101
  Transmission Date: 20250409
  Serious: Yes (Other)
  Sender: FDA-CTU
  Company Number: None

PATIENT
  Age: 41 Year
  Sex: Female

DRUGS (1)
  1. TERBINAFINE [Suspect]
     Active Substance: TERBINAFINE

REACTIONS (1)
  - Alopecia [None]

NARRATIVE: CASE EVENT DATE: 20250101
